FAERS Safety Report 4551233-5 (Version None)
Quarter: 2005Q1

REPORT INFORMATION
  Report Type: 
  Country: None (occurrence: None)
  Receive Date: 20050110
  Receipt Date: 20050103
  Transmission Date: 20050727
  Serious: Yes (Life-Threatening)
  Sender: FDA-Public Use
  Company Number: 2005CG00017

PATIENT
  Age: 61 Year
  Sex: Female

DRUGS (6)
  1. NEXIUM [Suspect]
     Dosage: 20 MG DAILY PO
     Route: 048
  2. CORTANCYL [Suspect]
     Indication: RHEUMATOID ARTHRITIS
     Dosage: 10 MG DAILY PO
     Route: 048
  3. LEVOTHYROXINE SODIUM [Suspect]
     Indication: HYPOTHYROIDISM
     Dosage: 125 UG DAILY PO
     Route: 048
  4. IXPRIM [Suspect]
  5. HUMIRA [Suspect]
     Indication: RHEUMATOID ARTHRITIS
     Dosage: 40 MG Q2WK SQ
     Route: 058
     Dates: start: 20040308, end: 20040904
  6. ARAVA [Suspect]
     Indication: RHEUMATOID ARTHRITIS

REACTIONS (9)
  - ASCITES [None]
  - LEUKOCYTURIA [None]
  - LUNG INFECTION [None]
  - PERITONEAL INFECTION [None]
  - PLEURAL EFFUSION [None]
  - PLEURAL INFECTION [None]
  - TUBERCULOSIS [None]
  - TUBERCULOSIS GASTROINTESTINAL [None]
  - URINARY TRACT INFECTION [None]
